FAERS Safety Report 21961792 (Version 2)
Quarter: 2023Q1

REPORT INFORMATION
  Report Type: Report from Study
  Country: BR (occurrence: BR)
  Receive Date: 20230207
  Receipt Date: 20230213
  Transmission Date: 20230417
  Serious: Yes (Death, Hospitalization, Other)
  Sender: FDA-Public Use
  Company Number: BR-002147023-NVSC2023BR025965

PATIENT
  Sex: Female

DRUGS (1)
  1. KISQALI [Suspect]
     Active Substance: RIBOCICLIB
     Indication: Product used for unknown indication
     Dosage: UNK
     Route: 065

REACTIONS (10)
  - Condition aggravated [Fatal]
  - Pulmonary oedema [Unknown]
  - Dyspnoea [Unknown]
  - Respiratory disorder [Unknown]
  - Respiratory arrest [Unknown]
  - Diarrhoea [Unknown]
  - Pneumonia [Unknown]
  - Swelling [Unknown]
  - Fluid retention [Unknown]
  - Abdominal discomfort [Unknown]
